FAERS Safety Report 8593992 (Version 3)
Quarter: 2013Q3

REPORT INFORMATION
  Report Type: Report from Study
  Country: FR (occurrence: FR)
  Receive Date: 20120604
  Receipt Date: 20130719
  Transmission Date: 20140515
  Serious: Yes (Life-Threatening, Hospitalization, Disabling, Other)
  Sender: FDA-Public Use
  Company Number: FR-ASTRAZENECA-2012SE35718

PATIENT
  Age: 18796 Day
  Sex: Male

DRUGS (4)
  1. TICAGRELOR [Suspect]
     Indication: ACUTE MYOCARDIAL INFARCTION
     Dosage: PLACEBO PRE-HOSP FOLLOWED BY LOADING DOSE 180 MG IN HOSPITAL
     Route: 048
     Dates: start: 20120528, end: 20120528
  2. TICAGRELOR [Suspect]
     Indication: ACUTE MYOCARDIAL INFARCTION
     Route: 048
     Dates: start: 20120528
  3. STUDY PROCEDURE [Suspect]
     Indication: ACUTE MYOCARDIAL INFARCTION
  4. ANTICOAGULATION [Suspect]

REACTIONS (2)
  - Pericardial effusion [Not Recovered/Not Resolved]
  - Ventricular tachycardia [Recovered/Resolved]
